FAERS Safety Report 7405008-X (Version None)
Quarter: 2011Q2

REPORT INFORMATION
  Report Type: 
  Country: None (occurrence: None)
  Receive Date: 20110411
  Receipt Date: 20110329
  Transmission Date: 20111010
  Serious: Yes (Other)
  Sender: FDA-Public Use
  Company Number: US-JNJFOC-20061006154

PATIENT
  Sex: Male

DRUGS (3)
  1. RISPERDAL [Suspect]
     Indication: RESTLESSNESS
  2. RISPERDAL [Suspect]
     Indication: POOR QUALITY SLEEP
  3. RISPERDAL [Suspect]
     Indication: SCHIZOPHRENIA

REACTIONS (1)
  - TYPE 2 DIABETES MELLITUS [None]
